FAERS Safety Report 9439291 (Version 4)
Quarter: 2014Q2

REPORT INFORMATION
  Report Type: Report from Study
  Country: CZ (occurrence: CZ)
  Receive Date: 20130804
  Receipt Date: 20140414
  Transmission Date: 20141212
  Serious: Yes (Hospitalization)
  Sender: FDA-Public Use
  Company Number: CZ-ROCHE-1253071

PATIENT
  Age: 56 Year
  Sex: Female
  Weight: 75 kg

DRUGS (7)
  1. PERTUZUMAB [Suspect]
     Indication: BREAST CANCER
     Dosage: LOADING DOSE AND LAST DOSE PRIOR TO SAE ON 01/JUL/2013
     Route: 042
     Dates: start: 20130701
  2. CAPECITABINE [Suspect]
     Indication: BREAST CANCER
     Dosage: LAST DOSE PRIOR TO SAE ON 16/JUL/2013
     Route: 048
     Dates: start: 20130702
  3. TRASTUZUMAB [Suspect]
     Indication: BREAST CANCER
     Dosage: LOADING DOSE AND LAST DOSE PRIOR TO SAE ON 02/JUL/2013
     Route: 042
     Dates: start: 20130702
  4. WARFARIN [Concomitant]
     Route: 065
     Dates: start: 201202
  5. CIPRALEX [Concomitant]
     Route: 065
     Dates: start: 2000
  6. IMODIUM [Concomitant]
     Route: 065
     Dates: start: 20130715
  7. DIOCTAHEDRAL SMECTITE [Concomitant]
     Route: 065
     Dates: start: 20130722

REACTIONS (1)
  - Subileus [Recovered/Resolved]
